FAERS Safety Report 16382947 (Version 1)
Quarter: 2019Q2

REPORT INFORMATION
  Report Type: Spontaneous
  Country: US (occurrence: US)
  Receive Date: 20190426
  Receipt Date: 20190426
  Transmission Date: 20190711
  Serious: No
  Sender: FDA-Public Use
  Company Number: None

PATIENT
  Age: 65 Year
  Sex: Female
  Weight: 78.93 kg

DRUGS (18)
  1. FENTANYL. [Concomitant]
     Active Substance: FENTANYL
  2. NAPROXEN DR [Concomitant]
     Active Substance: NAPROXEN
  3. TYLENOL [Concomitant]
     Active Substance: ACETAMINOPHEN
  4. VIT D [Concomitant]
     Active Substance: VITAMIN D NOS
  5. B VITAMINS [Concomitant]
     Active Substance: CYANOCOBALAMIN\DEXPANTHENOL\NIACINAMIDE\PYRIDOXINE HYDROCHLORIDE\RIBOFLAVIN 5^-PHOSPHATE SODIUM\THIAMINE HYDROCHLORIDE\VITAMIN B COMPLEX
  6. AMBIEN [Concomitant]
     Active Substance: ZOLPIDEM TARTRATE
  7. OXYCODONE [Concomitant]
     Active Substance: OXYCODONE
  8. ELAVIL [Concomitant]
     Active Substance: AMITRIPTYLINE HYDROCHLORIDE
  9. MAG [Concomitant]
  10. INJECTAFER [Suspect]
     Active Substance: FERRIC CARBOXYMALTOSE
     Indication: ANAEMIA
     Dosage: ?          OTHER ROUTE:INFUSION 7 DAYS APART?
     Dates: start: 20190308
  11. NATURE-THROID [Concomitant]
     Active Substance: THYROID, PORCINE
  12. INJECTAFER [Suspect]
     Active Substance: FERRIC CARBOXYMALTOSE
     Indication: ANAEMIA POSTOPERATIVE
     Dosage: ?          OTHER ROUTE:INFUSION 7 DAYS APART?
     Dates: start: 20190308
  13. NORVASC [Concomitant]
     Active Substance: AMLODIPINE BESYLATE
  14. HRT [Concomitant]
     Active Substance: UNSPECIFIED INGREDIENT
  15. ZINC. [Concomitant]
     Active Substance: ZINC
  16. CA [Concomitant]
  17. PREVACID [Concomitant]
     Active Substance: LANSOPRAZOLE
  18. DMV [Concomitant]

REACTIONS (4)
  - Fatigue [None]
  - Blood phosphorus decreased [None]
  - Palpitations [None]
  - Myalgia [None]

NARRATIVE: CASE EVENT DATE: 20190318
